FAERS Safety Report 13589978 (Version 3)
Quarter: 2018Q1

REPORT INFORMATION
  Report Type: Report from Study
  Country: BR (occurrence: BR)
  Receive Date: 20170530
  Receipt Date: 20180103
  Transmission Date: 20180508
  Serious: Yes (Other)
  Sender: FDA-Public Use
  Company Number: PHHY2017BR077137

PATIENT
  Sex: Female
  Weight: 68 kg

DRUGS (4)
  1. COSENTYX [Suspect]
     Active Substance: SECUKINUMAB
     Indication: PSORIASIS
     Dosage: 2 DF (AMPOULES), QMO
     Route: 058
  2. AMITRIPTYLINE HYDROCHLORIDE. [Concomitant]
     Active Substance: AMITRIPTYLINE HYDROCHLORIDE
     Indication: DEPRESSION
     Dosage: 2 DF (25 MG), QD (SINCE 8 YEARS AGO)
     Route: 048
  3. COSENTYX [Suspect]
     Active Substance: SECUKINUMAB
     Indication: PSORIATIC ARTHROPATHY
     Dosage: 300 MG, QMO
     Route: 058
  4. COSENTYX [Suspect]
     Active Substance: SECUKINUMAB
     Indication: SPINAL OSTEOARTHRITIS
     Dosage: 150 MG, UNK
     Route: 058

REACTIONS (6)
  - Drug hypersensitivity [Recovered/Resolved]
  - Blood test abnormal [Unknown]
  - Headache [Recovered/Resolved]
  - Choking [Recovered/Resolved]
  - Oropharyngeal pain [Recovered/Resolved]
  - Skin mass [Unknown]
